FAERS Safety Report 7921739-7 (Version None)
Quarter: 2011Q4

REPORT INFORMATION
  Report Type: 
  Country: None (occurrence: None)
  Receive Date: 20111117
  Receipt Date: 20111116
  Transmission Date: 20120403
  Serious: Yes (Other)
  Sender: FDA-Public Use
  Company Number: US-GLAXOSMITHKLINE-A0953420A

PATIENT
  Age: 70 Year
  Sex: Female

DRUGS (10)
  1. RAMIPRIL [Concomitant]
  2. OMEPRAZOLE [Concomitant]
  3. ATENOLOL [Concomitant]
  4. VITAMIN D [Concomitant]
  5. CALCIUM [Concomitant]
  6. PRAVASTATIN [Concomitant]
  7. COUMADIN [Concomitant]
  8. ASCORBIC ACID [Concomitant]
  9. SORIATANE [Suspect]
     Indication: PSORIASIS
     Dosage: 17.5MG PER DAY
     Route: 048
     Dates: start: 20110601
  10. SYNTHROID [Concomitant]

REACTIONS (6)
  - ATRIAL FIBRILLATION [None]
  - ALOPECIA [None]
  - ANXIETY [None]
  - DRY MOUTH [None]
  - CHAPPED LIPS [None]
  - STICKY SKIN [None]
